FAERS Safety Report 6049104-0 (Version None)
Quarter: 2009Q1

REPORT INFORMATION
  Report Type: 
  Country: None (occurrence: None)
  Receive Date: 20090123
  Receipt Date: 20090112
  Transmission Date: 20090719
  Serious: Yes (Hospitalization)
  Sender: FDA-Public Use
  Company Number: CA-ELI_LILLY_AND_COMPANY-CA200901001856

PATIENT
  Sex: Female

DRUGS (14)
  1. FORTEO [Suspect]
     Indication: OSTEOPOROSIS
     Dosage: 20 UG, DAILY (1/D)
     Route: 058
     Dates: start: 20070610
  2. MORPHINE [Concomitant]
  3. OSTOFORTE [Concomitant]
  4. ESTROGEN NOS [Concomitant]
  5. OMEPRAZOLE [Concomitant]
  6. LORAZEPAM [Concomitant]
  7. TRAZODONE HCL [Concomitant]
  8. CRESTOR [Concomitant]
  9. WARFARIN [Concomitant]
  10. URSODIOL [Concomitant]
  11. GRAVOL TAB [Concomitant]
  12. IMOVANE [Concomitant]
  13. FLOVENT [Concomitant]
  14. VENTOLIN                                /SCH/ [Concomitant]

REACTIONS (3)
  - NAUSEA [None]
  - NUTRITIONAL CONDITION ABNORMAL [None]
  - PYREXIA [None]
